FAERS Safety Report 25808137 (Version 1)
Quarter: 2025Q3

REPORT INFORMATION
  Report Type: Spontaneous
  Country: US (occurrence: US)
  Receive Date: 20250916
  Receipt Date: 20250916
  Transmission Date: 20251021
  Serious: Yes (Hospitalization, Other)
  Sender: GRIFOLS
  Company Number: US-IGSA-BIG0037819

PATIENT
  Age: 68 Year
  Sex: Male

DRUGS (1)
  1. GAMUNEX-C [Suspect]
     Active Substance: HUMAN IMMUNOGLOBULIN G
     Indication: Product used for unknown indication
     Dosage: UNK UNK, Q.2WK.
     Route: 042
     Dates: start: 20250826

REACTIONS (2)
  - Cerebrovascular accident [Unknown]
  - Hemiparesis [Unknown]

NARRATIVE: CASE EVENT DATE: 20250826
